FAERS Safety Report 9830474 (Version 1)
Quarter: 2014Q1

REPORT INFORMATION
  Report Type: Spontaneous
  Country: CA (occurrence: CA)
  Receive Date: 20140120
  Receipt Date: 20140120
  Transmission Date: 20141002
  Serious: Yes (Hospitalization, Disabling)
  Sender: FDA-Public Use
  Company Number: CA-GLAXOSMITHKLINE-A1056253A

PATIENT
  Age: 5 Month
  Sex: Female

DRUGS (3)
  1. VENTOLIN [Suspect]
     Indication: PNEUMONIA
     Route: 055
     Dates: start: 20010423
  2. ATROVENT [Suspect]
     Indication: PNEUMONIA
     Route: 065
     Dates: start: 20010423
  3. EPINEPHRINE [Suspect]
     Indication: PNEUMONIA
     Route: 065
     Dates: start: 20010422

REACTIONS (22)
  - Brain injury [Not Recovered/Not Resolved]
  - Cardio-respiratory arrest [Recovered/Resolved]
  - Mental impairment [Not Recovered/Not Resolved]
  - Disability [Not Recovered/Not Resolved]
  - Septic shock [Unknown]
  - Hypoxia [Unknown]
  - Sepsis [Unknown]
  - Grunting [Unknown]
  - Pulse pressure increased [Unknown]
  - Dyspnoea [Unknown]
  - Pyrexia [Unknown]
  - Feeding disorder of infancy or early childhood [Unknown]
  - Muscular weakness [Unknown]
  - Lung disorder [Unknown]
  - Gait disturbance [Unknown]
  - Thrombosis [Unknown]
  - Muscle tightness [Unknown]
  - Ligament disorder [Unknown]
  - Cardiovascular disorder [Unknown]
  - Finger amputation [Not Recovered/Not Resolved]
  - Orthosis user [Unknown]
  - Drug ineffective [Unknown]
